FAERS Safety Report 9163963 (Version 1)
Quarter: 2013Q1

REPORT INFORMATION
  Report Type: Report from Study
  Country: US (occurrence: US)
  Receive Date: 20130314
  Receipt Date: 20130314
  Transmission Date: 20140127
  Serious: Yes (Hospitalization)
  Sender: FDA-Public Use
  Company Number: US-US-EMD SERONO, INC.-7198715

PATIENT
  Sex: Female

DRUGS (5)
  1. REBIF [Suspect]
     Indication: MULTIPLE SCLEROSIS
     Route: 058
     Dates: start: 20120817, end: 20130217
  2. LEVETIRACETAM [Concomitant]
     Indication: CONVULSION
  3. GABAPENTIN [Concomitant]
     Indication: PAIN
  4. FAMOTIDINE [Concomitant]
     Indication: PROPHYLAXIS OF NAUSEA AND VOMITING
  5. COMPAZINE [Concomitant]
     Indication: CONVULSION

REACTIONS (4)
  - Influenza [Unknown]
  - Multiple sclerosis relapse [Recovering/Resolving]
  - Loss of control of legs [Unknown]
  - Feeling abnormal [Unknown]
